FAERS Safety Report 4511139-4 (Version None)
Quarter: 2004Q4

REPORT INFORMATION
  Report Type: 
  Country: None (occurrence: None)
  Receive Date: 20041012
  Receipt Date: 20040630
  Transmission Date: 20050328
  Serious: No
  Sender: FDA-Public Use
  Company Number: PHEH2004US07076

PATIENT
  Age: 51 Year
  Sex: Female

DRUGS (5)
  1. ELIDEL [Suspect]
     Indication: ROSACEA
     Dosage: BID, TOPICAL
     Route: 061
     Dates: start: 20040401
  2. ZOLOFT [Concomitant]
  3. RISPERDAL [Concomitant]
  4. CLONOPIN [Concomitant]
  5. HYDROCHLOROTHIAZIDE [Concomitant]

REACTIONS (2)
  - GLOSSODYNIA [None]
  - PARAESTHESIA ORAL [None]
